FAERS Safety Report 14157246 (Version 2)
Quarter: 2017Q4

REPORT INFORMATION
  Report Type: Spontaneous
  Country: JP (occurrence: JP)
  Receive Date: 20171103
  Receipt Date: 20171206
  Transmission Date: 20180321
  Serious: Yes (Hospitalization, Other)
  Sender: FDA-Public Use
  Company Number: JP-JNJFOC-20171034445

PATIENT
  Age: 48 Year
  Sex: Male

DRUGS (3)
  1. LIPIDIL [Suspect]
     Active Substance: FENOFIBRATE
     Indication: HYPERLIPIDAEMIA
     Dosage: IN MORNING AND EVENING
     Route: 048
     Dates: start: 2015
  2. XEPLION [Suspect]
     Active Substance: PALIPERIDONE PALMITATE
     Indication: SCHIZOPHRENIA
     Dosage: DELTOID MUSCLE
     Route: 030
     Dates: start: 20170916, end: 20170916
  3. XEPLION [Suspect]
     Active Substance: PALIPERIDONE PALMITATE
     Indication: SCHIZOPHRENIA
     Dosage: DELTOID MUSCLE
     Route: 030
     Dates: start: 20170923, end: 20170923

REACTIONS (2)
  - Neuroleptic malignant syndrome [Recovering/Resolving]
  - Rhabdomyolysis [Recovered/Resolved]

NARRATIVE: CASE EVENT DATE: 2017
